FAERS Safety Report 7882968 (Version 2)
Quarter: 2020Q4

REPORT INFORMATION
  Report Type: Spontaneous
  Country: SE (occurrence: SE)
  Receive Date: 20110404
  Receipt Date: 20201106
  Transmission Date: 20210114
  Serious: Yes (Other)
  Sender: FDA-Public Use
  Company Number: SE-JNJFOC-20110309027

PATIENT
  Age: 53 Year
  Sex: Female
  Weight: 90 kg

DRUGS (8)
  1. IMUREL [Concomitant]
     Active Substance: AZATHIOPRINE SODIUM
     Indication: CROHN^S DISEASE
  2. IMUREL [Concomitant]
     Active Substance: AZATHIOPRINE SODIUM
  3. REMICADE [Suspect]
     Active Substance: INFLIXIMAB
     Indication: CROHN^S DISEASE
     Route: 042
     Dates: start: 200803, end: 20100923
  4. DIKLOFENAK [Concomitant]
     Active Substance: DICLOFENAC SODIUM
  5. PAPAVERIN [Concomitant]
     Active Substance: PAPAVERINE
  6. MAXALT [Concomitant]
     Active Substance: RIZATRIPTAN BENZOATE
  7. IMUREL [Concomitant]
     Active Substance: AZATHIOPRINE SODIUM
  8. PENTASA [Concomitant]
     Active Substance: MESALAMINE

REACTIONS (1)
  - Systemic lupus erythematosus [Not Recovered/Not Resolved]

NARRATIVE: CASE EVENT DATE: 201011
